FAERS Safety Report 23503622 (Version 1)
Quarter: 2024Q1

REPORT INFORMATION
  Report Type: Spontaneous
  Country: SE (occurrence: SE)
  Receive Date: 20240208
  Receipt Date: 20240208
  Transmission Date: 20240410
  Serious: Yes (Other)
  Sender: FDA-Public Use
  Company Number: SE-CELLTRION INC.-2024SE002788

PATIENT

DRUGS (2)
  1. INFLIXIMAB [Suspect]
     Active Substance: INFLIXIMAB
     Indication: Rheumatoid arthritis
     Dosage: 300 MG EVERY 8 WEEKS
     Route: 042
     Dates: start: 20171201, end: 20231218
  2. METHOTREXATE [Concomitant]
     Active Substance: METHOTREXATE
     Dosage: 10 MG
     Route: 048
     Dates: end: 202312

REACTIONS (3)
  - Loose tooth [Unknown]
  - Osteomyelitis [Unknown]
  - Oral herpes zoster [Unknown]

NARRATIVE: CASE EVENT DATE: 20230101
